FAERS Safety Report 4505576-1 (Version None)
Quarter: 2004Q4

REPORT INFORMATION
  Report Type: 
  Country: None (occurrence: None)
  Receive Date: 20041018
  Receipt Date: 20040719
  Transmission Date: 20050328
  Serious: No
  Sender: FDA-Public Use
  Company Number: 207938

PATIENT
  Age: 47 Year
  Sex: Female
  Weight: 45.4 kg

DRUGS (1)
  1. XOLAIR [Suspect]
     Indication: ASTHMA
     Dosage: 150 MG, Q4W
     Dates: start: 20040402

REACTIONS (2)
  - ASTHMA [None]
  - PRURITUS [None]
